FAERS Safety Report 19772987 (Version 1)
Quarter: 2021Q3

REPORT INFORMATION
  Report Type: Other
  Country: FR (occurrence: FR)
  Receive Date: 20210901
  Receipt Date: 20210901
  Transmission Date: 20211014
  Serious: Yes (Other)
  Sender: FDA-Public Use
  Company Number: FR-LAURUS-001103

PATIENT
  Age: 74 Year
  Sex: Female

DRUGS (14)
  1. ALPELISIB [Suspect]
     Active Substance: ALPELISIB
     Indication: METASTASES TO LIVER
     Dosage: 200 MG/DAY
  2. ALPELISIB [Suspect]
     Active Substance: ALPELISIB
     Indication: METASTASES TO BONE
     Dosage: 300 MG/DAY
  3. FULVESTRANT. [Concomitant]
     Active Substance: FULVESTRANT
     Indication: METASTASES TO BONE
  4. METFORMIN [Suspect]
     Active Substance: METFORMIN HYDROCHLORIDE
     Indication: HYPERGLYCAEMIA
     Dosage: 1000 MG TWICE DAILY
     Route: 048
  5. ALPELISIB [Suspect]
     Active Substance: ALPELISIB
     Indication: METASTASES TO BONE
     Dosage: 250 MG/DAY
  6. INSULIN [Suspect]
     Active Substance: INSULIN NOS
     Indication: HYPERGLYCAEMIA
     Dosage: 150 UNITS/DAY
     Route: 042
  7. VILDAGLIPTIN [Suspect]
     Active Substance: VILDAGLIPTIN
     Indication: HYPERGLYCAEMIA
     Dosage: 50 MG TWICE DAILY
     Route: 048
  8. ALPELISIB [Suspect]
     Active Substance: ALPELISIB
     Indication: METASTASES TO BONE
     Dosage: 200 MG/DAY
  9. METFORMIN [Suspect]
     Active Substance: METFORMIN HYDROCHLORIDE
     Indication: HYPERGLYCAEMIA
     Dosage: 1000 MG THREE TIMES/DAY
     Route: 048
  10. INSULIN [Suspect]
     Active Substance: INSULIN NOS
     Indication: HYPERGLYCAEMIA
     Dosage: 150 UNITS/DAY
     Route: 058
  11. FULVESTRANT. [Concomitant]
     Active Substance: FULVESTRANT
     Indication: METASTASES TO LIVER
  12. INSULIN [Suspect]
     Active Substance: INSULIN NOS
     Indication: HYPERGLYCAEMIA
     Dosage: 250 UNITS/DAY
     Route: 042
  13. ALPELISIB [Suspect]
     Active Substance: ALPELISIB
     Indication: METASTASES TO LIVER
     Dosage: 250 MG/DAY
  14. ALPELISIB [Suspect]
     Active Substance: ALPELISIB
     Indication: METASTASES TO LIVER
     Dosage: 200 MG/DAY

REACTIONS (3)
  - Treatment failure [Unknown]
  - Diabetes mellitus inadequate control [Recovered/Resolved]
  - Drug ineffective [Unknown]
